FAERS Safety Report 5938747-8 (Version None)
Quarter: 2008Q4

REPORT INFORMATION
  Report Type: 
  Country: None (occurrence: None)
  Receive Date: 20081103
  Receipt Date: 20081027
  Transmission Date: 20090506
  Serious: Yes (Death)
  Sender: FDA-Public Use
  Company Number: JP-BAYER-200812152BYL

PATIENT
  Age: 76 Year
  Sex: Male

DRUGS (10)
  1. CIPROXAN-I.V. [Suspect]
     Indication: SEPSIS
     Dosage: TOTAL DAILY DOSE: 600 MG  UNIT DOSE: 300 MG
     Route: 041
     Dates: start: 20080804, end: 20080818
  2. UNASYN [Concomitant]
     Indication: SEPSIS
     Dosage: TOTAL DAILY DOSE: 6 G
     Route: 042
     Dates: start: 20080804, end: 20080806
  3. CLARITHROMYCIN [Concomitant]
     Indication: SEPSIS
     Dosage: TOTAL DAILY DOSE: 400 MG
     Route: 048
     Dates: start: 20080728, end: 20080818
  4. ZYVOX [Concomitant]
     Indication: SEPSIS
     Dosage: TOTAL DAILY DOSE: 1200 MG
     Route: 041
     Dates: start: 20080806, end: 20080818
  5. CLEANAL [Concomitant]
     Dosage: TOTAL DAILY DOSE: 1200 MG  UNIT DOSE: 200 MG
     Route: 048
     Dates: start: 20080728, end: 20080818
  6. MUCOSOLVAN L [Concomitant]
     Dosage: TOTAL DAILY DOSE: 45 MG  UNIT DOSE: 45 MG
     Route: 048
     Dates: start: 20080728, end: 20080818
  7. HOKUNALIN:TAPE [Concomitant]
     Route: 062
     Dates: start: 20080728, end: 20080818
  8. PENTAZOCINE LACTATE [Concomitant]
     Dosage: TOTAL DAILY DOSE: 15 MG
     Route: 042
     Dates: start: 20080728, end: 20080818
  9. LOXONIN [Concomitant]
     Route: 048
     Dates: start: 20080728, end: 20080818
  10. DEXTROSE 5% [Concomitant]
     Dosage: TOTAL DAILY DOSE: 400 ML
     Route: 041
     Dates: start: 20080804, end: 20080818

REACTIONS (1)
  - CARDIO-RESPIRATORY ARREST [None]
